FAERS Safety Report 4759377-X (Version None)
Quarter: 2005Q3

REPORT INFORMATION
  Report Type: 
  Country: None (occurrence: None)
  Receive Date: 20050826
  Receipt Date: 20050506
  Transmission Date: 20060218
  Serious: No
  Sender: FDA-Public Use
  Company Number: 213204

PATIENT
  Age: 48 Year
  Sex: Male

DRUGS (10)
  1. RAPTIVA [Suspect]
     Indication: PSORIASIS
     Dosage: 1/WEEK,SUBCUTANEOUS
     Route: 058
  2. CELEXA [Concomitant]
  3. GLIPIZIDE [Concomitant]
  4. HYDROCHLOROTHIAZIDE [Concomitant]
  5. ASPIRIN [Concomitant]
  6. MUCINEX (GUAIFENESIN) [Concomitant]
  7. ATENOLOL [Concomitant]
  8. DIOVAN [Concomitant]
  9. AVANDIA [Concomitant]
  10. LOVASTATIN [Concomitant]

REACTIONS (1)
  - BLOOD GLUCOSE INCREASED [None]
